FAERS Safety Report 8518933-3 (Version None)
Quarter: 2012Q3

REPORT INFORMATION
  Report Type: 
  Country: None (occurrence: None)
  Receive Date: 20120718
  Receipt Date: 20120711
  Transmission Date: 20120928
  Serious: Yes (Other)
  Sender: FDA-Public Use
  Company Number: BR-GLAXOSMITHKLINE-A0984648A

PATIENT
  Sex: Female
  Weight: 55 kg

DRUGS (2)
  1. FLUTICASONE PROPIONATE/SALMETEROL [Suspect]
     Indication: ASTHMA
     Dosage: 1PUFF TWICE PER DAY
     Route: 055
     Dates: start: 19980101, end: 20120705
  2. BEROTEC [Concomitant]
     Indication: ASTHMATIC CRISIS
     Dosage: 1PUFF AS REQUIRED
     Route: 055
     Dates: start: 19920101

REACTIONS (4)
  - ASTHMA [None]
  - DRUG INEFFECTIVE [None]
  - INHALATION THERAPY [None]
  - PRODUCT QUALITY ISSUE [None]
